FAERS Safety Report 6601538-9 (Version None)
Quarter: 2010Q1

REPORT INFORMATION
  Report Type: 
  Country: None (occurrence: None)
  Receive Date: 20100225
  Receipt Date: 20091113
  Transmission Date: 20100710
  Serious: No
  Sender: FDA-Public Use
  Company Number: US-KINGPHARMUSA00001-K200901421

PATIENT
  Age: 80 Year
  Sex: Female
  Weight: 53.515 kg

DRUGS (2)
  1. FLECTOR [Suspect]
     Indication: MUSCULOSKELETAL CHEST PAIN
     Dosage: 1 PATCH, EVERY 12 HOURS
     Route: 061
     Dates: start: 20091030
  2. OMEPRAZOLE [Concomitant]
     Indication: GASTROOESOPHAGEAL REFLUX DISEASE
     Dosage: UNK

REACTIONS (1)
  - ABDOMINAL PAIN UPPER [None]
